FAERS Safety Report 9263841 (Version 1)
Quarter: 2013Q2

REPORT INFORMATION
  Report Type: Other
  Country: DE (occurrence: DE)
  Receive Date: 20130430
  Receipt Date: 20130430
  Transmission Date: 20140414
  Serious: Yes (Hospitalization)
  Sender: FDA-Public Use
  Company Number: DE-WATSON-2013-07097

PATIENT
  Age: 48 Year
  Sex: Male

DRUGS (6)
  1. CITALOPRAM HYDROBROMIDE (UNKNOWN) [Suspect]
     Indication: PRODUCT USED FOR UNKNOWN INDICATION
     Dosage: 40 MG, DAILY
     Route: 048
     Dates: start: 201208, end: 20130313
  2. CITALOPRAM HYDROBROMIDE (UNKNOWN) [Suspect]
     Dosage: 30MG MILLIGRAM(S),1 DAY
     Route: 048
     Dates: start: 20130301, end: 20130304
  3. CITALOPRAM HYDROBROMIDE (UNKNOWN) [Suspect]
     Dosage: 20MG MILLIGRAM(S),1 DAY
     Route: 048
     Dates: start: 20130305, end: 20130311
  4. CITALOPRAM HYDROBROMIDE (UNKNOWN) [Suspect]
     Dosage: 10 MG MILLIGRAM(S),1 DAY
     Route: 048
     Dates: start: 20130312, end: 20130313
  5. LYRICA [Concomitant]
     Indication: PRODUCT USED FOR UNKNOWN INDICATION
     Dosage: 150 MG, DAILY
     Route: 048
     Dates: start: 201208
  6. MIRTAZAPIN [Concomitant]
     Indication: PRODUCT USED FOR UNKNOWN INDICATION
     Dosage: 30 MG, DAILY
     Route: 048
     Dates: start: 201208

REACTIONS (1)
  - Ejaculation disorder [Recovering/Resolving]
